FAERS Safety Report 8022182-5 (Version None)
Quarter: 2012Q1

REPORT INFORMATION
  Report Type: 
  Country: None (occurrence: None)
  Receive Date: 20120104
  Receipt Date: 20111226
  Transmission Date: 20120608
  Serious: Yes (Other)
  Sender: FDA-Public Use
  Company Number: TR-ASTRAZENECA-2011SE78409

PATIENT
  Age: 38 Year
  Sex: Male

DRUGS (2)
  1. SYMBICORT [Suspect]
     Dosage: 320/9 UG, TWO TIMES A DAY
     Route: 055
     Dates: start: 20111123, end: 20111219
  2. SYMBICORT [Suspect]
     Indication: INTERSTITIAL LUNG DISEASE
     Dosage: 160/4.5 UG, TWO TIMES A DAY
     Route: 055
     Dates: start: 20110922

REACTIONS (2)
  - PALPITATIONS [None]
  - LOSS OF CONSCIOUSNESS [None]
